FAERS Safety Report 6430774-X (Version None)
Quarter: 2009Q4

REPORT INFORMATION
  Report Type: 
  Country: None (occurrence: None)
  Receive Date: 20091106
  Receipt Date: 20091028
  Transmission Date: 20100525
  Serious: Yes (Hospitalization, Other)
  Sender: FDA-Public Use
  Company Number: US-JNJFOC-20091100246

PATIENT
  Sex: Female
  Weight: 54.43 kg

DRUGS (4)
  1. DURAGESIC-100 [Suspect]
     Route: 062
  2. DURAGESIC-100 [Suspect]
     Indication: PAIN
     Route: 062
  3. ZANAFLEX [Concomitant]
     Indication: GASTRIC DISORDER
     Route: 048
  4. CYCLOSPORINE [Concomitant]
     Indication: PROPHYLAXIS AGAINST TRANSPLANT REJECTION
     Route: 048

REACTIONS (9)
  - CONVULSION [None]
  - DYSPNOEA [None]
  - FATIGUE [None]
  - INSOMNIA [None]
  - OXYGEN SATURATION DECREASED [None]
  - PAIN [None]
  - PNEUMONIA [None]
  - PULMONARY EMBOLISM [None]
  - RENAL PAIN [None]
